FAERS Safety Report 6005749-5 (Version None)
Quarter: 2008Q4

REPORT INFORMATION
  Report Type: 
  Country: None (occurrence: None)
  Receive Date: 20081217
  Receipt Date: 20081215
  Transmission Date: 20090506
  Serious: Yes (Other)
  Sender: FDA-Public Use
  Company Number: FR-BRISTOL-MYERS SQUIBB COMPANY-14443469

PATIENT
  Age: 57 Year
  Sex: Female

DRUGS (3)
  1. REYATAZ [Suspect]
     Indication: HIV INFECTION
     Dates: start: 20081017, end: 20081027
  2. KIVEXA [Suspect]
     Indication: HIV INFECTION
     Dosage: 1DF=600MG/300MG
     Dates: start: 20081017, end: 20081027
  3. NORVIR [Suspect]
     Indication: HIV INFECTION
     Dates: start: 20081017, end: 20081027

REACTIONS (5)
  - ANGIOEDEMA [None]
  - EYELID OEDEMA [None]
  - LIP OEDEMA [None]
  - PYREXIA [None]
  - URTICARIA [None]
